FAERS Safety Report 5948525-1 (Version None)
Quarter: 2008Q4

REPORT INFORMATION
  Report Type: 
  Country: None (occurrence: None)
  Receive Date: 20081111
  Receipt Date: 20081105
  Transmission Date: 20090506
  Serious: Yes (Other)
  Sender: FDA-Public Use
  Company Number: B0545643A

PATIENT
  Age: 44 Year
  Sex: Male

DRUGS (1)
  1. AUGMENTIN '125' [Suspect]
     Indication: TONSILLITIS
     Route: 065
     Dates: start: 20081002, end: 20081006

REACTIONS (2)
  - FAECES DISCOLOURED [None]
  - MELAENA [None]
